FAERS Safety Report 18366179 (Version 1)
Quarter: 2020Q4

REPORT INFORMATION
  Report Type: Spontaneous
  Country: GR (occurrence: GR)
  Receive Date: 20201009
  Receipt Date: 20201009
  Transmission Date: 20210114
  Serious: Yes (Other)
  Sender: FDA-Public Use
  Company Number: GR-GILEAD-2020-0480931

PATIENT
  Age: 54 Year
  Sex: Male

DRUGS (1)
  1. YESCARTA [Suspect]
     Active Substance: AXICABTAGENE CILOLEUCEL
     Indication: PRODUCT USED FOR UNKNOWN INDICATION
     Dosage: UNK
     Route: 065
     Dates: start: 20200612, end: 20200612

REACTIONS (3)
  - Cytokine release syndrome [Unknown]
  - Disease progression [Unknown]
  - Neutropenia [Unknown]

NARRATIVE: CASE EVENT DATE: 20200615
